FAERS Safety Report 8421069-3 (Version None)
Quarter: 2012Q2

REPORT INFORMATION
  Report Type: 
  Country: None (occurrence: None)
  Receive Date: 20120608
  Receipt Date: 20120531
  Transmission Date: 20120825
  Serious: Yes (Other)
  Sender: FDA-Public Use
  Company Number: BR-US-EMD SERONO, INC.-7136948

PATIENT
  Sex: Female

DRUGS (4)
  1. HOMEOPATHY FORMULATION [Concomitant]
     Indication: PRODUCT USED FOR UNKNOWN INDICATION
  2. ELANI CICLO [Concomitant]
     Indication: PRODUCT USED FOR UNKNOWN INDICATION
  3. IBUPROFEN (ADVIL) [Concomitant]
     Indication: PRODUCT USED FOR UNKNOWN INDICATION
  4. REBIF [Suspect]
     Indication: RELAPSING-REMITTING MULTIPLE SCLEROSIS
     Route: 058
     Dates: start: 20111017

REACTIONS (1)
  - OSTEONECROSIS [None]
